FAERS Safety Report 16706951 (Version 1)
Quarter: 2019Q3

REPORT INFORMATION
  Report Type: Report from Study
  Country: JP (occurrence: JP)
  Receive Date: 20190815
  Receipt Date: 20190815
  Transmission Date: 20191004
  Serious: Yes (Hospitalization)
  Sender: FDA-Public Use
  Company Number: JP-AMGEN-JPNNI2019128156

PATIENT
  Age: 55 Year
  Sex: Male

DRUGS (2)
  1. PROGRAF [Concomitant]
     Active Substance: TACROLIMUS\TACROLIMUS ANHYDROUS
     Dosage: UNK
  2. BLINATUMOMAB [Suspect]
     Active Substance: BLINATUMOMAB
     Indication: ACUTE LYMPHOCYTIC LEUKAEMIA REFRACTORY
     Dosage: 9 MICROGRAM, QD
     Route: 041
     Dates: start: 20181212, end: 20181219

REACTIONS (5)
  - Cranial nerve infection [Not Recovered/Not Resolved]
  - Device related infection [Recovered/Resolved]
  - Pericarditis infective [Not Recovered/Not Resolved]
  - Sepsis [Not Recovered/Not Resolved]
  - Acute kidney injury [Not Recovered/Not Resolved]

NARRATIVE: CASE EVENT DATE: 20181214
